FAERS Safety Report 7556335-7 (Version None)
Quarter: 2011Q2

REPORT INFORMATION
  Report Type: 
  Country: None (occurrence: None)
  Receive Date: 20110620
  Receipt Date: 20110606
  Transmission Date: 20111010
  Serious: Yes (Other)
  Sender: FDA-Public Use
  Company Number: US-JNJFOC-20110604009

PATIENT
  Age: 62 Year
  Sex: Female
  Weight: 86.18 kg

DRUGS (10)
  1. FLUCONAZOLE [Concomitant]
     Indication: ANTIFUNGAL PROPHYLAXIS
     Route: 048
     Dates: start: 20110525, end: 20110604
  2. WARFARIN SODIUM [Suspect]
     Indication: CARDIOVASCULAR DISORDER
     Route: 048
  3. SENOKOT [Concomitant]
     Indication: CONSTIPATION
     Route: 048
  4. DILAUDID [Concomitant]
     Indication: PAIN
     Dosage: AS NECESSARY
     Route: 048
  5. GABAPENTIN [Concomitant]
     Indication: PAIN
     Dosage: 2 TABLETS MONDAY TO THURSDAY, HALF TABLET ON FRIDAY TO SUNDAY
     Route: 048
  6. DOXIL [Suspect]
     Indication: BREAST DISORDER
     Route: 042
     Dates: start: 20110501
  7. CELEXA [Concomitant]
     Indication: DEPRESSION
     Route: 048
  8. NEXIUM [Concomitant]
     Indication: GASTROOESOPHAGEAL REFLUX DISEASE
     Route: 048
  9. PHENERGAN HCL [Concomitant]
     Indication: NAUSEA
     Route: 048
  10. TEMAZEPAM [Concomitant]
     Indication: INSOMNIA
     Dosage: AS NECESSARY
     Route: 048

REACTIONS (1)
  - INTERNATIONAL NORMALISED RATIO INCREASED [None]
